FAERS Safety Report 5959709-0 (Version None)
Quarter: 2008Q4

REPORT INFORMATION
  Report Type: 
  Country: None (occurrence: None)
  Receive Date: 20081119
  Receipt Date: 20081119
  Transmission Date: 20090506
  Serious: Yes (Hospitalization)
  Sender: FDA-Public Use
  Company Number: None

PATIENT
  Age: 65 Year
  Sex: Female
  Weight: 69 kg

DRUGS (11)
  1. DEPAKOTE [Suspect]
     Indication: BIPOLAR DISORDER
     Dosage: 500 MG PO Q8 X 2 YRS
  2. AMLODIPINE [Concomitant]
  3. SINUSTATIN [Concomitant]
  4. ASPIRIN [Concomitant]
  5. LANTUS [Concomitant]
  6. FESO4 -FERROUS SULFATE- [Concomitant]
  7. CHOLCHICINE [Concomitant]
  8. PREDNISONE TAB [Concomitant]
  9. METFORMIN HCL [Concomitant]
  10. GLIPIZIDE [Concomitant]
  11. ENOLOPRIL [Concomitant]

REACTIONS (8)
  - AMMONIA INCREASED [None]
  - BLOOD CREATININE INCREASED [None]
  - BLOOD UREA INCREASED [None]
  - DISORIENTATION [None]
  - HEPATIC ENCEPHALOPATHY [None]
  - HEPATIC FAILURE [None]
  - HYPOPHAGIA [None]
  - LETHARGY [None]
